FAERS Safety Report 8603069-3 (Version None)
Quarter: 2012Q3

REPORT INFORMATION
  Report Type: 
  Country: None (occurrence: None)
  Receive Date: 20120817
  Receipt Date: 20120718
  Transmission Date: 20120928
  Serious: No
  Sender: FDA-Public Use
  Company Number: US-GLAXOSMITHKLINE-A0986598A

PATIENT
  Sex: Female

DRUGS (1)
  1. VOTRIENT [Suspect]
     Indication: RENAL CANCER
     Dosage: 800MG PER DAY
     Route: 048

REACTIONS (5)
  - FATIGUE [None]
  - NAUSEA [None]
  - VOMITING [None]
  - ASTHENIA [None]
  - HAIR COLOUR CHANGES [None]
